FAERS Safety Report 7444569-1 (Version None)
Quarter: 2011Q2

REPORT INFORMATION
  Report Type: 
  Country: None (occurrence: None)
  Receive Date: 20110429
  Receipt Date: 20110425
  Transmission Date: 20111010
  Serious: Yes (Hospitalization, Congenital Anomaly, Other)
  Sender: FDA-Public Use
  Company Number: FR-PFIZER INC-2006154166

PATIENT
  Sex: Female
  Weight: 2.2 kg

DRUGS (11)
  1. ZERIT [Suspect]
     Indication: INFECTION PROPHYLAXIS
     Dosage: UNK
     Route: 048
     Dates: start: 20000908
  2. VIRAMUNE [Suspect]
     Indication: INFECTION PROPHYLAXIS
     Route: 048
  3. COMBIVIR [Suspect]
     Indication: HIV INFECTION
     Route: 064
     Dates: start: 20000501
  4. RETROVIR [Suspect]
     Route: 064
     Dates: start: 20000908, end: 20000908
  5. VIDEX [Suspect]
     Indication: HIV INFECTION
     Dosage: UNK
     Route: 064
     Dates: end: 20000908
  6. SPASFON [Concomitant]
  7. ALBUTEROL SULFATE AUTOHALER [Concomitant]
  8. RETROVIR [Suspect]
     Indication: HIV INFECTION
     Route: 064
     Dates: end: 20000201
  9. SUSTIVA [Suspect]
     Indication: HIV INFECTION
     Dosage: UNK
     Route: 064
     Dates: end: 20000908
  10. ZERIT [Suspect]
     Indication: HIV INFECTION
     Dosage: UNK
     Route: 064
     Dates: end: 20000908
  11. VIRACEPT [Suspect]
     Indication: HIV INFECTION
     Route: 064
     Dates: end: 20000201

REACTIONS (15)
  - NEUTROPENIA [None]
  - PLATELET COUNT INCREASED [None]
  - CONGENITAL ANOMALY [None]
  - DEVELOPMENTAL DELAY [None]
  - PREMATURE LABOUR [None]
  - ECZEMA [None]
  - HYPERTRIGLYCERIDAEMIA [None]
  - BRONCHITIS [None]
  - VASCULAR MALFORMATION PERIPHERAL [None]
  - SLEEP DISORDER [None]
  - DRUG EXPOSURE DURING PREGNANCY [None]
  - LYMPHOPENIA [None]
  - HAEMANGIOMA OF SKIN [None]
  - GASTROOESOPHAGEAL REFLUX DISEASE [None]
  - CEREBROVASCULAR DISORDER [None]
